FAERS Safety Report 17763360 (Version 1)
Quarter: 2020Q2

REPORT INFORMATION
  Report Type: Spontaneous
  Country: HR (occurrence: HR)
  Receive Date: 20200509
  Receipt Date: 20200509
  Transmission Date: 20200714
  Serious: Yes (Other)
  Sender: FDA-Public Use
  Company Number: HR-TEVA-2020-HR-1232693

PATIENT
  Sex: Male

DRUGS (1)
  1. MOSTRAFIN [Suspect]
     Active Substance: FINASTERIDE
     Route: 048

REACTIONS (2)
  - Libido decreased [Unknown]
  - Urinary retention [Unknown]

NARRATIVE: CASE EVENT DATE: 2020
